FAERS Safety Report 5154691-0 (Version None)
Quarter: 2006Q4

REPORT INFORMATION
  Report Type: 
  Country: None (occurrence: None)
  Receive Date: 20061113
  Receipt Date: 20061030
  Transmission Date: 20070319
  Serious: Yes (Hospitalization, Disabling)
  Sender: FDA-Public Use
  Company Number: 2006-149844-NL

PATIENT
  Age: 54 Year
  Sex: Male

DRUGS (3)
  1. DEXAMETHASONE TAB [Suspect]
     Indication: LEUKAEMIA PLASMACYTIC
     Dosage: 40 MG
  2. DOXORUBICIN HCL [Suspect]
     Indication: LEUKAEMIA PLASMACYTIC
     Dosage: 9 MG/M2
  3. BORTEZOMIB [Suspect]
     Indication: LEUKAEMIA PLASMACYTIC
     Dosage: 1 MG/M2

REACTIONS (1)
  - PARAESTHESIA [None]
